FAERS Safety Report 4399506-3 (Version None)
Quarter: 2004Q3

REPORT INFORMATION
  Report Type: 
  Country: None (occurrence: None)
  Receive Date: 20040712
  Receipt Date: 20040701
  Transmission Date: 20050211
  Serious: No
  Sender: FDA-Public Use
  Company Number: A02200401862

PATIENT
  Age: 21 Year
  Sex: Female

DRUGS (2)
  1. PLAQUENIL [Suspect]
     Indication: MIXED CONNECTIVE TISSUE DISEASE
     Dosage: ORAL
     Route: 048
     Dates: start: 20020101, end: 20040101
  2. CONTRACEPTION ORALE (ORAL CONTRACEPTIVE NOS) [Concomitant]

REACTIONS (1)
  - PHLEBITIS [None]
